FAERS Safety Report 4742928-9 (Version None)
Quarter: 2005Q3

REPORT INFORMATION
  Report Type: 
  Country: None (occurrence: None)
  Receive Date: 20050811
  Receipt Date: 20050804
  Transmission Date: 20060218
  Serious: Yes (Hospitalization)
  Sender: FDA-Public Use
  Company Number: US-BRISTOL-MYERS SQUIBB COMPANY-13064126

PATIENT
  Age: 71 Year
  Sex: Male

DRUGS (4)
  1. CETUXIMAB [Suspect]
     Indication: OESOPHAGEAL CARCINOMA
     Dosage: INITIATED ON 20-JUL-2005.
     Route: 042
     Dates: start: 20050725
  2. TAXOL [Suspect]
     Indication: OESOPHAGEAL CARCINOMA
     Route: 042
  3. CARBOPLATIN [Suspect]
     Indication: OESOPHAGEAL CARCINOMA
  4. RADIATION THERAPY [Suspect]
     Indication: OESOPHAGEAL CARCINOMA

REACTIONS (4)
  - DEHYDRATION [None]
  - OESOPHAGEAL HAEMORRHAGE [None]
  - RASH [None]
  - SYNCOPE [None]
